FAERS Safety Report 24949943 (Version 1)
Quarter: 2025Q1

REPORT INFORMATION
  Report Type: Spontaneous
  Country: US (occurrence: None)
  Receive Date: 20250207
  Receipt Date: 20250207
  Transmission Date: 20250408
  Serious: Yes (Life-Threatening, Hospitalization)
  Sender: FDA-CTU
  Company Number: None

PATIENT
  Age: 64 Year
  Sex: Male
  Weight: 82.3 kg

DRUGS (2)
  1. ETOPOSIDE [Suspect]
     Active Substance: ETOPOSIDE
     Indication: Diffuse large B-cell lymphoma
     Route: 042
     Dates: start: 20241025, end: 20241115
  2. CYTARABINE [Concomitant]
     Active Substance: CYTARABINE
     Dates: start: 20241026, end: 20241029

REACTIONS (7)
  - Flushing [None]
  - Visual impairment [None]
  - Presyncope [None]
  - Chills [None]
  - Hyperhidrosis [None]
  - Throat tightness [None]
  - Rash [None]

NARRATIVE: CASE EVENT DATE: 20241026
